FAERS Safety Report 13284925 (Version 1)
Quarter: 2017Q1

REPORT INFORMATION
  Report Type: Spontaneous
  Country: CN (occurrence: CN)
  Receive Date: 20170301
  Receipt Date: 20170301
  Transmission Date: 20170428
  Serious: Yes (Hospitalization)
  Sender: FDA-Public Use
  Company Number: CN-ABBVIE-17P-035-1892893-00

PATIENT
  Sex: Male

DRUGS (1)
  1. DEPAKINE CHRONO [Suspect]
     Active Substance: VALPROATE SODIUM
     Indication: EPILEPSY
     Dosage: EXTENDED RELEASE
     Route: 048
     Dates: start: 20170220

REACTIONS (10)
  - Extremity contracture [Recovered/Resolved]
  - Musculoskeletal stiffness [Recovered/Resolved]
  - Feeling abnormal [Recovered/Resolved]
  - Foaming at mouth [Recovered/Resolved]
  - Dyskinesia [Recovered/Resolved]
  - Petit mal epilepsy [Recovered/Resolved]
  - Tic [Recovered/Resolved]
  - Trismus [Recovered/Resolved]
  - Generalised tonic-clonic seizure [Recovered/Resolved]
  - Eye movement disorder [Recovered/Resolved]

NARRATIVE: CASE EVENT DATE: 20170221
